FAERS Safety Report 5338503-8 (Version None)
Quarter: 2007Q2

REPORT INFORMATION
  Report Type: 
  Country: None (occurrence: None)
  Receive Date: 20070405
  Receipt Date: 20061106
  Transmission Date: 20071010
  Serious: No
  Sender: FDA-Public Use
  Company Number: US200611001209

PATIENT
  Sex: Female

DRUGS (5)
  1. CYMBALTA [Suspect]
     Indication: DEPRESSION
     Dosage: 30 MG
     Dates: start: 20060101
  2. LASIX [Concomitant]
  3. LOTREL (AMLODIPNE, BENAZEPRIL HYDROCHLORIDE) [Concomitant]
  4. LORTAB [Concomitant]
  5. POTASSIUM (POTASSIUM) [Concomitant]

REACTIONS (3)
  - ANGER [None]
  - HYPOAESTHESIA [None]
  - PARAESTHESIA [None]
